FAERS Safety Report 5201468-3 (Version None)
Quarter: 2006Q4

REPORT INFORMATION
  Report Type: 
  Country: None (occurrence: None)
  Receive Date: 20061004
  Receipt Date: 20060517
  Transmission Date: 20070319
  Serious: No
  Sender: FDA-Public Use
  Company Number: US200605003823

PATIENT
  Age: 73 Year
  Sex: Female

DRUGS (3)
  1. ALIMTA [Suspect]
     Indication: NON-SMALL CELL LUNG CANCER RECURRENT
     Dates: start: 20060501
  2. FOLIC ACID [Concomitant]
  3. VITAMIN B12 [Concomitant]

REACTIONS (5)
  - BREAST DISCOMFORT [None]
  - DYSGEUSIA [None]
  - FATIGUE [None]
  - FEELING ABNORMAL [None]
  - MUSCULOSKELETAL DISCOMFORT [None]
